FAERS Safety Report 13741809 (Version 1)
Quarter: 2017Q3

REPORT INFORMATION
  Report Type: Report from Study
  Country: US (occurrence: US)
  Receive Date: 20170711
  Receipt Date: 20170711
  Transmission Date: 20171127
  Serious: Yes (Hospitalization)
  Sender: FDA-Public Use
  Company Number: US-VIFOR (INTERNATIONAL) INC.-VIT-2017-07137

PATIENT
  Age: 57 Year
  Sex: Female

DRUGS (2)
  1. VELTASSA [Suspect]
     Active Substance: PATIROMER
     Indication: BLOOD POTASSIUM INCREASED
     Route: 048
     Dates: start: 20170515, end: 20170620
  2. HYDROCHLOROTHIAZIDE/TRIAMTERENE [Concomitant]

REACTIONS (5)
  - Syncope [Unknown]
  - Drug dose omission [Unknown]
  - Fall [Unknown]
  - Blood potassium increased [Unknown]
  - Orthostatic hypotension [Unknown]

NARRATIVE: CASE EVENT DATE: 20170613
